FAERS Safety Report 15329822 (Version 4)
Quarter: 2021Q1

REPORT INFORMATION
  Report Type: Spontaneous
  Country: US (occurrence: US)
  Receive Date: 20180829
  Receipt Date: 20210125
  Transmission Date: 20210419
  Serious: Yes (Hospitalization, Other)
  Sender: FDA-Public Use
  Company Number: US-PFIZER INC-2018336856

PATIENT
  Age: 62 Year
  Sex: Female
  Weight: 81.65 kg

DRUGS (2)
  1. GENOTROPIN MQ [Suspect]
     Active Substance: SOMATROPIN
     Indication: HYPOPITUITARISM
     Dosage: 0.2 MG, DAILY
  2. GENOTROPIN MQ [Suspect]
     Active Substance: SOMATROPIN
     Dosage: 0.2 MG, 1X/DAY (0.2MG BY STOMACH INJECTION NIGHTLY)
     Dates: start: 1994

REACTIONS (27)
  - Enteritis infectious [Recovered/Resolved]
  - Blood triglycerides increased [Unknown]
  - Blood prolactin increased [Unknown]
  - Low density lipoprotein increased [Unknown]
  - Blood urea decreased [Unknown]
  - Dehydration [Unknown]
  - Muscle disorder [Unknown]
  - Fatigue [Unknown]
  - White blood cell disorder [Unknown]
  - Tri-iodothyronine increased [Unknown]
  - Thyroxine free decreased [Unknown]
  - Vomiting [Unknown]
  - Blood sodium decreased [Unknown]
  - High density lipoprotein decreased [Unknown]
  - Blood glucose increased [Unknown]
  - Blood urea nitrogen/creatinine ratio decreased [Unknown]
  - Urine leukocyte esterase positive [Unknown]
  - Dysphonia [Unknown]
  - COVID-19 [Recovered/Resolved with Sequelae]
  - Blood cholesterol increased [Unknown]
  - Blood testosterone free decreased [Unknown]
  - Blood bilirubin increased [Unknown]
  - Lymphocyte count increased [Unknown]
  - Epstein-Barr virus antigen positive [Unknown]
  - COVID-19 pneumonia [Recovered/Resolved with Sequelae]
  - Blood thyroid stimulating hormone decreased [Unknown]
  - Glycosylated haemoglobin increased [Unknown]

NARRATIVE: CASE EVENT DATE: 20180417
